FAERS Safety Report 4722207-6 (Version None)
Quarter: 2005Q3

REPORT INFORMATION
  Report Type: 
  Country: None (occurrence: None)
  Receive Date: 20050722
  Receipt Date: 20040830
  Transmission Date: 20060218
  Serious: Yes (Other)
  Sender: FDA-Public Use
  Company Number: US-GLAXOSMITHKLINE-A0524352A

PATIENT
  Sex: Male

DRUGS (12)
  1. AVANDIA [Suspect]
     Dosage: 8MG PER DAY
     Route: 048
  2. GLUCOTROL [Concomitant]
     Dosage: 5MG TWICE PER DAY
     Route: 048
  3. LIPITOR [Concomitant]
     Dosage: 20MG PER DAY
     Route: 048
  4. VIAGRA [Concomitant]
     Route: 048
  5. TRIAMCINOLONE [Concomitant]
  6. DOCUSATE [Concomitant]
     Route: 048
  7. LASIX [Concomitant]
     Dosage: 80MG TWICE PER DAY
     Route: 048
  8. TOPROL-XL [Concomitant]
  9. UNIVASC [Concomitant]
  10. GLUCONATE [Concomitant]
     Dosage: 325MG TWICE PER DAY
     Route: 048
  11. ALDACTONE [Concomitant]
     Dosage: 25MG IN THE MORNING
     Route: 048
  12. VIAGRA [Concomitant]
     Indication: DRUG USE FOR UNKNOWN INDICATION

REACTIONS (1)
  - CARDIAC FAILURE CONGESTIVE [None]
